FAERS Safety Report 6678801-9 (Version None)
Quarter: 2010Q2

REPORT INFORMATION
  Report Type: 
  Country: None (occurrence: None)
  Receive Date: 20100412
  Receipt Date: 20100412
  Transmission Date: 20101027
  Serious: Yes (Life-Threatening, Hospitalization)
  Sender: FDA-Public Use
  Company Number: None

PATIENT
  Age: 62 Year
  Sex: Male
  Weight: 95.9 kg

DRUGS (1)
  1. HEPARIN [Suspect]
     Indication: CEREBROVASCULAR ACCIDENT
     Dosage: 22.9 IV
     Route: 042
     Dates: start: 20100401, end: 20100405

REACTIONS (7)
  - ANTI-PLATELET ANTIBODY POSITIVE [None]
  - ATELECTASIS [None]
  - HEPARIN-INDUCED THROMBOCYTOPENIA [None]
  - PNEUMONIA [None]
  - PYREXIA [None]
  - THROMBOCYTOPENIA [None]
  - URINARY TRACT INFECTION [None]
